FAERS Safety Report 4527092-3 (Version None)
Quarter: 2004Q4

REPORT INFORMATION
  Report Type: 
  Country: None (occurrence: None)
  Receive Date: 20041129
  Receipt Date: 20040929
  Transmission Date: 20050328
  Serious: Yes (Life-Threatening, Hospitalization, Other)
  Sender: FDA-Public Use
  Company Number: USA040567412

PATIENT
  Age: 42 Year
  Sex: Male
  Weight: 73 kg

DRUGS (9)
  1. ZYPREXA [Suspect]
     Dosage: 20 MG DAY
     Dates: start: 20000331, end: 20000501
  2. DEPAKOTE [Concomitant]
  3. LISINOPRIL [Concomitant]
  4. FELODIPINE [Concomitant]
  5. NAPROXEN SODIUM [Concomitant]
  6. ALLOPURINOL [Concomitant]
  7. SYNTHROID [Concomitant]
  8. ASPIRIN [Concomitant]
  9. PROPRANOLOL [Concomitant]

REACTIONS (3)
  - DIABETES MELLITUS [None]
  - DIABETIC COMA [None]
  - HYPERGLYCAEMIA [None]
